FAERS Safety Report 15733038 (Version 1)
Quarter: 2018Q4

REPORT INFORMATION
  Report Type: Spontaneous
  Country: US (occurrence: US)
  Receive Date: 20181218
  Receipt Date: 20181218
  Transmission Date: 20190205
  Serious: No
  Sender: FDA-Public Use
  Company Number: US-AMGEN-USASP2018179121

PATIENT
  Sex: Female

DRUGS (3)
  1. ENBREL [Suspect]
     Active Substance: ETANERCEPT
     Dosage: UNK
     Route: 065
     Dates: start: 201705, end: 2017
  2. ENBREL [Suspect]
     Active Substance: ETANERCEPT
     Indication: PRODUCT USED FOR UNKNOWN INDICATION
     Dosage: UNK
     Route: 065
     Dates: start: 201704, end: 2017
  3. ENBREL [Suspect]
     Active Substance: ETANERCEPT
     Dosage: UNK
     Route: 065
     Dates: start: 201706, end: 201708

REACTIONS (1)
  - Drug ineffective [Unknown]

NARRATIVE: CASE EVENT DATE: 2017
